FAERS Safety Report 8120032-X (Version None)
Quarter: 2011Q4

REPORT INFORMATION
  Report Type: 
  Country: None (occurrence: None)
  Receive Date: 20111227
  Receipt Date: 20110907
  Transmission Date: 20120403
  Serious: No
  Sender: FDA-Public Use
  Company Number: PHHY2011US44768

PATIENT
  Age: 48 Year
  Sex: Male
  Weight: 90.7 kg

DRUGS (4)
  1. PREDNISONE TAB [Concomitant]
  2. GILENYA [Suspect]
     Dosage: 0.5 MG, QD, ORAL
     Route: 048
  3. FISH OIL (FISH OIL) [Concomitant]
  4. VITAMIN D [Concomitant]

REACTIONS (5)
  - ABDOMINAL PAIN UPPER [None]
  - VITREOUS FLOATERS [None]
  - DIZZINESS [None]
  - NAUSEA [None]
  - HEADACHE [None]
